FAERS Safety Report 10548122 (Version 2)
Quarter: 2014Q4

REPORT INFORMATION
  Report Type: Spontaneous
  Country: FR (occurrence: FR)
  Receive Date: 20141028
  Receipt Date: 20141028
  Transmission Date: 20150529
  Serious: Yes (Other)
  Sender: FDA-Public Use
  Company Number: FR-TEVA-484351ISR

PATIENT
  Age: 45 Year
  Sex: Female
  Weight: 60 kg

DRUGS (1)
  1. COPAXONE [Suspect]
     Active Substance: GLATIRAMER ACETATE
     Dosage: 20 MILLIGRAM DAILY;
     Route: 058
     Dates: start: 20131128

REACTIONS (6)
  - Neck pain [Recovering/Resolving]
  - Ligament sprain [Unknown]
  - Headache [Recovering/Resolving]
  - Musculoskeletal stiffness [Recovering/Resolving]
  - Pain in extremity [Unknown]
  - Visual impairment [Recovered/Resolved]

NARRATIVE: CASE EVENT DATE: 201405
